FAERS Safety Report 19140838 (Version 1)
Quarter: 2021Q2

REPORT INFORMATION
  Report Type: Report from Study
  Country: ES (occurrence: ES)
  Receive Date: 20210415
  Receipt Date: 20210415
  Transmission Date: 20210717
  Serious: Yes (Death)
  Sender: FDA-Public Use
  Company Number: ES-SAMSUNG BIOEPIS-SB-2021-08951

PATIENT
  Age: 73 Year
  Sex: Male

DRUGS (1)
  1. BENEPALI [Suspect]
     Active Substance: ETANERCEPT
     Indication: ANKYLOSING SPONDYLITIS
     Dosage: 50 MG/FOUR WEEKS, FOUR PRE?FILLED SYRINGES
     Route: 058
     Dates: start: 20190328

REACTIONS (4)
  - Acute kidney injury [Fatal]
  - Urinary tract infection [Fatal]
  - Product use issue [Unknown]
  - Encephalopathy [Fatal]

NARRATIVE: CASE EVENT DATE: 20210106
